FAERS Safety Report 8786126 (Version 2)
Quarter: 2015Q1

REPORT INFORMATION
  Report Type: Report from Study
  Country: US (occurrence: US)
  Receive Date: 20120914
  Receipt Date: 20150330
  Transmission Date: 20150721
  Serious: Yes (Death)
  Sender: FDA-Public Use
  Company Number: US-ROCHE-1126310

PATIENT
  Sex: Male

DRUGS (16)
  1. AVASTIN [Suspect]
     Active Substance: BEVACIZUMAB
     Indication: UTERINE CANCER
     Dosage: DAY 1 AND DAY 15 EVERY 28DAYS
     Route: 042
     Dates: start: 20090304
  2. TOPOTECAN [Concomitant]
     Active Substance: TOPOTECAN\TOPOTECAN HYDROCHLORIDE
     Route: 042
  3. ACETYLCYSTEINE. [Concomitant]
     Active Substance: ACETYLCYSTEINE
     Route: 048
  4. FERROUS SULFATE [Concomitant]
     Active Substance: FERROUS SULFATE\FERROUS SULFATE, DRIED
     Route: 048
  5. ALOXI [Concomitant]
     Active Substance: PALONOSETRON HYDROCHLORIDE
     Route: 042
  6. SENOKOT-S [Concomitant]
     Active Substance: DOCUSATE SODIUM\SENNOSIDES
     Route: 048
  7. SULAR [Concomitant]
     Active Substance: NISOLDIPINE
     Route: 048
  8. DECADRON [Concomitant]
     Active Substance: DEXAMETHASONE
     Route: 042
  9. ALTEPLASE [Concomitant]
     Active Substance: ALTEPLASE
     Route: 042
  10. ERGOCALCIFEROL. [Concomitant]
     Active Substance: ERGOCALCIFEROL
     Route: 048
  11. PYRIDOXINE [Concomitant]
     Active Substance: PYRIDOXINE
     Route: 048
  12. CARBOPLATIN. [Concomitant]
     Active Substance: CARBOPLATIN
  13. LORAZEPAM. [Concomitant]
     Active Substance: LORAZEPAM
     Route: 048
  14. TYLENOL [Concomitant]
     Active Substance: ACETAMINOPHEN
     Route: 048
  15. DIOVAN [Concomitant]
     Active Substance: VALSARTAN
     Route: 048
  16. BENADRYL [Concomitant]
     Active Substance: DIPHENHYDRAMINE HYDROCHLORIDE
     Route: 042

REACTIONS (10)
  - Disease progression [Unknown]
  - Dry skin [Unknown]
  - Metastases to soft tissue [Unknown]
  - Hypoaesthesia [Unknown]
  - Thrombocytopenia [Unknown]
  - Metastases to abdominal cavity [Unknown]
  - Death [Fatal]
  - Fatigue [Unknown]
  - Dyspnoea [Unknown]
  - Off label use [Unknown]
